FAERS Safety Report 14331948 (Version 1)
Quarter: 2017Q4

REPORT INFORMATION
  Report Type: Spontaneous
  Country: US (occurrence: US)
  Receive Date: 20171228
  Receipt Date: 20171228
  Transmission Date: 20180321
  Serious: Yes (Other)
  Sender: FDA-Public Use
  Company Number: US-LEXICON PHARMACEUTICALS, INC-17-1606-01317

PATIENT
  Age: 67 Year
  Sex: Male

DRUGS (6)
  1. KLONOPIN [Concomitant]
     Active Substance: CLONAZEPAM
  2. VITAMIN D [Concomitant]
     Active Substance: CHOLECALCIFEROL
  3. SOMATULINE [Concomitant]
     Active Substance: LANREOTIDE ACETATE
  4. TELOTRISTAT ETHYL [Suspect]
     Active Substance: TELOTRISTAT ETHYL
     Indication: CARCINOID TUMOUR OF THE SMALL BOWEL
     Route: 048
     Dates: start: 20170928
  5. METOPROLOL. [Concomitant]
     Active Substance: METOPROLOL
  6. FLOMAX [Concomitant]
     Active Substance: TAMSULOSIN HYDROCHLORIDE

REACTIONS (3)
  - Tumour marker increased [Not Recovered/Not Resolved]
  - Flushing [Unknown]
  - Defaecation urgency [Unknown]

NARRATIVE: CASE EVENT DATE: 2017
